FAERS Safety Report 23815320 (Version 1)
Quarter: 2024Q2

REPORT INFORMATION
  Report Type: Spontaneous
  Country: US (occurrence: US)
  Receive Date: 20240503
  Receipt Date: 20240503
  Transmission Date: 20240716
  Serious: No
  Sender: FDA-Public Use
  Company Number: US-PFIZER INC-202400100268

PATIENT
  Age: 22 Year

DRUGS (1)
  1. OXBRYTA [Suspect]
     Active Substance: VOXELOTOR

REACTIONS (1)
  - Headache [Unknown]
